FAERS Safety Report 26126387 (Version 2)
Quarter: 2025Q4

REPORT INFORMATION
  Report Type: Spontaneous
  Country: EU (occurrence: EU)
  Receive Date: 20251205
  Receipt Date: 20251212
  Transmission Date: 20260117
  Serious: Yes (Hospitalization, Disabling, Other)
  Sender: PFIZER
  Company Number: EU-MLMSERVICE-20251121-PI721782-00147-1

PATIENT
  Age: 43 Year
  Sex: Female

DRUGS (1)
  1. FILGRASTIM [Suspect]
     Active Substance: FILGRASTIM
     Indication: Haematopoietic stem cell mobilisation
     Dosage: UNK

REACTIONS (2)
  - Musculoskeletal toxicity [Recovered/Resolved]
  - Inflammation [Recovered/Resolved]
